FAERS Safety Report 9510973 (Version 2)
Quarter: 2013Q3

REPORT INFORMATION
  Report Type: Spontaneous
  Country: NL (occurrence: None)
  Receive Date: 20130905
  Receipt Date: 20130923
  Transmission Date: 20140515
  Serious: Yes (Death)
  Sender: FDA-Public Use
  Company Number: SP06961

PATIENT
  Age: 77 Year
  Sex: Female
  Weight: 64 kg

DRUGS (8)
  1. MOVIPREP [Suspect]
     Indication: BOWEL PREPARATION
     Route: 048
     Dates: start: 20130528, end: 20130530
  2. LANOXIN [Concomitant]
  3. ACENOCPUMAROL [Concomitant]
  4. METOPROLOL (METOPROLOL) [Concomitant]
  5. TRIMETHOPRIM [Suspect]
     Indication: URINARY TRACT INFECTION
     Dosage: 100 MG (100 MG, 1 IN 1 D)
     Route: 048
     Dates: start: 201302
  6. MIDALOZAM [Concomitant]
  7. FLUMAZENIL [Concomitant]
  8. FRAGMIN [Concomitant]

REACTIONS (17)
  - Nausea [None]
  - Vomiting [None]
  - Haematochezia [None]
  - Tachycardia [None]
  - Heart rate irregular [None]
  - Rectal neoplasm [None]
  - Hiatus hernia [None]
  - Gastrooesophageal reflux disease [None]
  - Oesophageal stenosis [None]
  - Ventricular fibrillation [None]
  - Acute myocardial infarction [None]
  - Torsade de pointes [None]
  - Blood potassium decreased [None]
  - Coma scale abnormal [None]
  - Myoclonus [None]
  - Pollakiuria [None]
  - Drug effect decreased [None]
